FAERS Safety Report 11359587 (Version 1)
Quarter: 2015Q3

REPORT INFORMATION
  Report Type: Spontaneous
  Country: US (occurrence: US)
  Receive Date: 20150807
  Receipt Date: 20150807
  Transmission Date: 20151125
  Serious: Yes (Other)
  Sender: FDA-Public Use
  Company Number: US-TEVA-584956USA

PATIENT
  Sex: Female

DRUGS (2)
  1. CHEMOTHERAPY [Concomitant]
     Active Substance: UNSPECIFIED INGREDIENT
  2. PROCHLORPERAZINE. [Suspect]
     Active Substance: PROCHLORPERAZINE
     Route: 065

REACTIONS (1)
  - Toxicity to various agents [Unknown]
